FAERS Safety Report 8478197 (Version 2)
Quarter: 2012Q4

REPORT INFORMATION
  Report Type: 
  Country: US (occurrence: US)
  Receive Date: 20120327
  Receipt Date: 20121013
  Transmission Date: 20130627
  Serious: Yes (Disabling, Other)
  Sender: FDA-Public Use
  Company Number: US-US-EMD SERONO, INC.-7120305

PATIENT
  Age: 55 None
  Sex: Female

DRUGS (1)
  1. REBIF [Suspect]
     Indication: MULTIPLE SCLEROSIS
     Route: 058
     Dates: start: 20110915

REACTIONS (5)
  - Deafness unilateral [Not Recovered/Not Resolved]
  - Inner ear disorder [Unknown]
  - Vertigo [Unknown]
  - Lethargy [Unknown]
  - Multiple sclerosis relapse [Recovering/Resolving]
